FAERS Safety Report 16730988 (Version 1)
Quarter: 2019Q3

REPORT INFORMATION
  Report Type: Spontaneous
  Country: CN (occurrence: CN)
  Receive Date: 20190822
  Receipt Date: 20190822
  Transmission Date: 20191005
  Serious: Yes (Other)
  Sender: FDA-Public Use
  Company Number: CN-FRESENIUS KABI-FK201909245

PATIENT
  Age: 57 Year
  Sex: Male
  Weight: 65 kg

DRUGS (9)
  1. STRUCTOLIPID 20% [Suspect]
     Active Substance: EGG PHOSPHOLIPIDS\GLYCERIN\SOYBEAN OIL
     Indication: HAEMATEMESIS
     Dosage: 250ML QD
     Route: 041
     Dates: start: 20190728, end: 20190729
  2. ADDAMEL N [Suspect]
     Active Substance: CHROMIC CHLORIDE\CUPROUS CHLORIDE\FERRIC CHLORIDE\MANGANESE CHLORIDE\POTASSIUM IODIDE\SODIUM FLUORIDE\SODIUM MOLYBDATE DIHYDRATE\SODIUM SELENITE\ZINC CHLORIDE
     Indication: HAEMATEMESIS
     Dosage: 10ML, QD
     Route: 041
     Dates: start: 20190728, end: 20190729
  3. DIPEPTIVEN [Suspect]
     Active Substance: ALANYL GLUTAMINE
     Indication: HAEMATEMESIS
     Dosage: 20G, QD
     Route: 041
     Dates: start: 20190728, end: 20190729
  4. OMEGAVEN [Suspect]
     Active Substance: FISH OIL
     Indication: HAEMATEMESIS
     Dosage: 100ML, QD
     Route: 041
     Dates: start: 20190728, end: 20190729
  5. POTASSIUM CHLORIDE. [Suspect]
     Active Substance: POTASSIUM CHLORIDE
     Indication: HAEMATEMESIS
     Dosage: 30ML, QD
     Route: 041
     Dates: start: 20190728, end: 20190729
  6. GLUCOSE INJECTION [Suspect]
     Active Substance: DEXTROSE
     Indication: HAEMATEMESIS
     Dosage: 250 ML QD
     Route: 041
     Dates: start: 20190728, end: 20190729
  7. ERGOCALCIFEROL/RETINOL/PHYTOMENADIONE/VITAMIN E NOS [Suspect]
     Active Substance: ERGOCALCIFEROL\PHYTONADIONE\RETINOL\TOCOPHEROL
     Indication: HAEMATEMESIS
     Dosage: 1 BOTTLE QD
     Route: 041
     Dates: start: 20190728, end: 20190729
  8. GLUCOSE 50% [Suspect]
     Active Substance: DEXTROSE
     Indication: HAEMATEMESIS
     Dosage: 300 ML QD
     Route: 041
     Dates: start: 20190728, end: 20190729
  9. GLYCINE/ALANINE/SERINE/ASPARTIC ACID/LEUCINE/METHIONINE/PHENYLALANINE/HISTIDINE/VALINE/THREONINE/TRY [Suspect]
     Active Substance: AMINO ACIDS
     Indication: HAEMATEMESIS
     Dosage: 500ML, QD
     Route: 041
     Dates: start: 20190728, end: 20190729

REACTIONS (2)
  - Back pain [Recovering/Resolving]
  - Chest discomfort [Recovering/Resolving]

NARRATIVE: CASE EVENT DATE: 20190729
